FAERS Safety Report 8426136-6 (Version None)
Quarter: 2012Q2

REPORT INFORMATION
  Report Type: 
  Country: None (occurrence: None)
  Receive Date: 20120611
  Receipt Date: 20111025
  Transmission Date: 20120825
  Serious: No
  Sender: FDA-Public Use
  Company Number: US-MYLANLABS-2011S1022070

PATIENT
  Age: 72 Year
  Sex: Female

DRUGS (10)
  1. LISINOPRIL [Concomitant]
  2. ASPIRIN [Concomitant]
  3. BUMEX [Concomitant]
  4. VICTOZA [Concomitant]
  5. CLONAZEPAM [Concomitant]
  6. GLIPIZIDE [Suspect]
     Route: 048
  7. LEVEMIR [Concomitant]
  8. KLOR-CON [Concomitant]
  9. GLIPIZIDE [Suspect]
     Indication: DIABETES MELLITUS
     Route: 048
     Dates: start: 20110714
  10. LEXAPRO [Concomitant]

REACTIONS (1)
  - BURNING SENSATION [None]
